FAERS Safety Report 20559733 (Version 4)
Quarter: 2022Q1

REPORT INFORMATION
  Report Type: Report from Study
  Country: EG (occurrence: EG)
  Receive Date: 20220307
  Receipt Date: 20220329
  Transmission Date: 20220424
  Serious: Yes (Hospitalization, Other)
  Sender: FDA-Public Use
  Company Number: EG-NOVARTISPH-NVSC2022EG050357

PATIENT
  Age: 41 Year
  Sex: Female

DRUGS (7)
  1. KISQALI [Suspect]
     Active Substance: RIBOCICLIB
     Indication: Breast cancer metastatic
     Dosage: 3 DOSAGE FORM, (3 TABLETS AT ONCE 3WEEKS THEN A FREE WEEK)
     Route: 048
     Dates: start: 201910, end: 201910
  2. KISQALI [Suspect]
     Active Substance: RIBOCICLIB
     Dosage: 2 DOSAGE FORM, (2 TABLETS AT ONCE 3 WEEKS THEN A FREE WEEK)
     Route: 065
     Dates: start: 201911, end: 202004
  3. KISQALI [Suspect]
     Active Substance: RIBOCICLIB
     Dosage: UNK
     Route: 065
     Dates: start: 202004, end: 202009
  4. KISQALI [Suspect]
     Active Substance: RIBOCICLIB
     Dosage: 5 MG, QD
     Route: 065
     Dates: end: 202011
  5. ZOMETA [Suspect]
     Active Substance: ZOLEDRONIC ACID
     Indication: Breast cancer
     Dosage: UNK, (EVERY 3 MONTH)
     Route: 042
     Dates: start: 201910, end: 20220116
  6. ZOLADEX [Concomitant]
     Active Substance: GOSERELIN ACETATE
     Indication: Neoplasm malignant
     Dosage: UNK, EVERY 3 MONTH
     Route: 065
     Dates: start: 20190926
  7. ZOLADEX [Concomitant]
     Active Substance: GOSERELIN ACETATE
     Dosage: UNK, EVERY 3 MONTH
     Route: 065
     Dates: start: 20220227

REACTIONS (15)
  - Pyrexia [Recovered/Resolved]
  - Fatigue [Recovered/Resolved]
  - Decreased immune responsiveness [Recovered/Resolved]
  - Liver function test increased [Recovered/Resolved]
  - Renal impairment [Recovered/Resolved]
  - Condition aggravated [Not Recovered/Not Resolved]
  - Headache [Not Recovered/Not Resolved]
  - Vision blurred [Not Recovered/Not Resolved]
  - Brain neoplasm [Not Recovered/Not Resolved]
  - Upper limb fracture [Unknown]
  - Laboratory test abnormal [Recovering/Resolving]
  - Bone density decreased [Recovered/Resolved]
  - Fracture [Recovered/Resolved]
  - Drug ineffective [Recovered/Resolved]
  - Product use issue [Unknown]

NARRATIVE: CASE EVENT DATE: 20191001
